FAERS Safety Report 4492186-8 (Version None)
Quarter: 2004Q4

REPORT INFORMATION
  Report Type: 
  Country: None (occurrence: None)
  Receive Date: 20041101
  Receipt Date: 20041020
  Transmission Date: 20050328
  Serious: Yes (Hospitalization)
  Sender: FDA-Public Use
  Company Number: 209789

PATIENT
  Age: 11 Year
  Sex: Male

DRUGS (4)
  1. NUTROPIN AQ [Suspect]
     Indication: GROWTH HORMONE DEFICIENCY
     Dosage: SEE IMAGE
     Route: 058
     Dates: start: 20040630, end: 20040924
  2. NUTROPIN AQ [Suspect]
     Indication: GROWTH HORMONE DEFICIENCY
     Dosage: SEE IMAGE
     Route: 058
     Dates: start: 20041004
  3. NASONEX NASAL SPRAY (MOMETASONE FUROATE) [Concomitant]
  4. SINGULAIR [Concomitant]

REACTIONS (1)
  - MENINGITIS [None]
